FAERS Safety Report 7476494-4 (Version None)
Quarter: 2011Q2

REPORT INFORMATION
  Report Type: 
  Country: None (occurrence: None)
  Receive Date: 20110512
  Receipt Date: 20110503
  Transmission Date: 20111010
  Serious: Yes (Other)
  Sender: FDA-Public Use
  Company Number: US-ASTRAZENECA-2011SE26107

PATIENT
  Sex: Female

DRUGS (4)
  1. CALCIUM [Concomitant]
  2. NEXIUM [Suspect]
     Indication: GASTROOESOPHAGEAL REFLUX DISEASE
     Route: 048
     Dates: start: 20030101
  3. MAGNESIUM [Concomitant]
  4. LASIX [Concomitant]

REACTIONS (4)
  - GASTRIC VARICES [None]
  - IRRITABLE BOWEL SYNDROME [None]
  - HEPATIC CIRRHOSIS [None]
  - HEPATIC NEOPLASM MALIGNANT [None]
